FAERS Safety Report 10158612 (Version 2)
Quarter: 2014Q2

REPORT INFORMATION
  Report Type: Spontaneous
  Country: IN (occurrence: IN)
  Receive Date: 20140508
  Receipt Date: 20140508
  Transmission Date: 20141212
  Serious: Yes (Hospitalization)
  Sender: FDA-Public Use
  Company Number: PHHY2014IN053675

PATIENT
  Age: 60 Year
  Sex: Female

DRUGS (2)
  1. VALPROIC ACID [Suspect]
     Indication: AGITATION
     Dosage: 500 MG, PER DAY
  2. OLANZAPINE [Interacting]
     Indication: PSYCHOTIC DISORDER
     Dosage: 10 MG, UNK

REACTIONS (21)
  - Neuroleptic malignant syndrome [Recovering/Resolving]
  - Hyponatraemia [Recovering/Resolving]
  - Blood creatine phosphokinase increased [Recovered/Resolved]
  - Muscle rigidity [Recovering/Resolving]
  - Autonomic nervous system imbalance [Recovering/Resolving]
  - Mental status changes [Recovering/Resolving]
  - Ammonia increased [Recovering/Resolving]
  - Pyrexia [Recovering/Resolving]
  - Tachycardia [Recovering/Resolving]
  - Tachypnoea [Recovering/Resolving]
  - Generalised tonic-clonic seizure [Recovering/Resolving]
  - Altered state of consciousness [Recovering/Resolving]
  - Hyperthermia [Recovering/Resolving]
  - Vomiting [Recovering/Resolving]
  - Tongue dry [Recovering/Resolving]
  - Dehydration [Recovering/Resolving]
  - Pallor [Recovering/Resolving]
  - Cerebral disorder [Recovering/Resolving]
  - Anaemia [Recovering/Resolving]
  - Leukocytosis [Recovering/Resolving]
  - Toxicity to various agents [Recovering/Resolving]
